FAERS Safety Report 24782885 (Version 1)
Quarter: 2024Q4

REPORT INFORMATION
  Report Type: Other
  Country: US (occurrence: US)
  Receive Date: 20241227
  Receipt Date: 20241227
  Transmission Date: 20250115
  Serious: Yes (Other)
  Sender: NUVO PHARMACEUTICALS
  Company Number: US-Nuvo Pharmaceuticals Inc-2167905

PATIENT
  Age: 39 Year
  Sex: Female

DRUGS (10)
  1. OXYCODONE HYDROCHLORIDE [Suspect]
     Active Substance: OXYCODONE HYDROCHLORIDE
     Indication: Product used for unknown indication
  2. HYDROCODONE BITARTRATE [Suspect]
     Active Substance: HYDROCODONE BITARTRATE
  3. CANNABIS SATIVA SUBSP. INDICA TOP [Concomitant]
     Active Substance: CANNABIS SATIVA SUBSP. INDICA TOP
  4. MIDOMAFETAMINE [Concomitant]
     Active Substance: MIDOMAFETAMINE
  5. LYSERGIDE [Concomitant]
     Active Substance: LYSERGIDE
  6. METHAMPHETAMINE HYDROCHLORIDE [Concomitant]
     Active Substance: METHAMPHETAMINE HYDROCHLORIDE
  7. COCAINE HYDROCHLORIDE [Concomitant]
     Active Substance: COCAINE HYDROCHLORIDE
  8. DIAZEPAM [Concomitant]
     Active Substance: DIAZEPAM
  9. ALPRAZOLAM [Concomitant]
     Active Substance: ALPRAZOLAM
  10. HEROIN [Suspect]
     Active Substance: DIAMORPHINE

REACTIONS (10)
  - Drug dependence [Unknown]
  - Drug withdrawal syndrome [Recovering/Resolving]
  - Depression [Recovering/Resolving]
  - Hyperhidrosis [Recovering/Resolving]
  - Screaming [Recovering/Resolving]
  - Pain [Recovering/Resolving]
  - Cold sweat [Recovering/Resolving]
  - Hallucination [Recovering/Resolving]
  - Choking [Recovering/Resolving]
  - Drug use disorder [Recovering/Resolving]
